FAERS Safety Report 9237519 (Version 5)
Quarter: 2015Q2

REPORT INFORMATION
  Report Type: Spontaneous
  Country: US (occurrence: US)
  Receive Date: 20130417
  Receipt Date: 20150626
  Transmission Date: 20150821
  Serious: Yes (Disabling, Other)
  Sender: FDA-Public Use
  Company Number: US-009507513-1304USA008237

PATIENT
  Sex: Male
  Weight: 85.71 kg

DRUGS (2)
  1. PROPECIA [Suspect]
     Active Substance: FINASTERIDE
     Indication: ANDROGENETIC ALOPECIA
     Dosage: 1 MG, UNK
     Route: 048
     Dates: start: 20060130, end: 20101119
  2. PROPECIA [Suspect]
     Active Substance: FINASTERIDE
     Indication: ALOPECIA

REACTIONS (29)
  - Fatigue [Unknown]
  - Drug ineffective [Unknown]
  - Erectile dysfunction [Unknown]
  - Vitamin D deficiency [Unknown]
  - Insomnia [Unknown]
  - Obsessive-compulsive personality disorder [Unknown]
  - Affective disorder [Unknown]
  - Somnolence [Unknown]
  - Drug abuse [Unknown]
  - Panic disorder without agoraphobia [Unknown]
  - Near drowning [Unknown]
  - Fibromyalgia [Unknown]
  - Suicidal ideation [Unknown]
  - Anxiety [Unknown]
  - Gastrooesophageal reflux disease [Unknown]
  - Diverticulitis [Unknown]
  - Depersonalisation [Unknown]
  - Narcolepsy [Unknown]
  - Cataplexy [Unknown]
  - Alcohol abuse [Unknown]
  - Sexual dysfunction [Not Recovered/Not Resolved]
  - Off label use [Unknown]
  - Herpes simplex [Unknown]
  - Asthenia [Unknown]
  - Attention deficit/hyperactivity disorder [Unknown]
  - Depression [Not Recovered/Not Resolved]
  - Cognitive disorder [Not Recovered/Not Resolved]
  - Chest pain [Unknown]
  - Bipolar I disorder [Unknown]

NARRATIVE: CASE EVENT DATE: 2009
